FAERS Safety Report 19245896 (Version 1)
Quarter: 2021Q2

REPORT INFORMATION
  Report Type: Spontaneous
  Country: US (occurrence: US)
  Receive Date: 20210511
  Receipt Date: 20210511
  Transmission Date: 20210717
  Serious: Yes (Hospitalization)
  Sender: FDA-Public Use
  Company Number: None

PATIENT
  Age: 50 Year
  Sex: Female

DRUGS (7)
  1. HERCEPTIN [Concomitant]
     Active Substance: TRASTUZUMAB
  2. TUKYSA [Concomitant]
     Active Substance: TUCATINIB
  3. OYSTER SHELL CALCIUM/D [Concomitant]
  4. ZOFRAN [Concomitant]
     Active Substance: ONDANSETRON HYDROCHLORIDE
  5. DEXAMETHASONE. [Concomitant]
     Active Substance: DEXAMETHASONE
  6. VITAMIN C [Concomitant]
     Active Substance: ASCORBIC ACID
  7. CAPECITABINE 500 MG [Suspect]
     Active Substance: CAPECITABINE
     Indication: BREAST CANCER FEMALE
     Dosage: OTHER FREQUENCY:AM AND PM;?
     Route: 048
     Dates: start: 20200729

REACTIONS (1)
  - Hospitalisation [None]

NARRATIVE: CASE EVENT DATE: 20210510
